FAERS Safety Report 8775563 (Version 2)
Quarter: 2012Q4

REPORT INFORMATION
  Report Type: Report from Study
  Country: NL (occurrence: NL)
  Receive Date: 20120910
  Receipt Date: 20120924
  Transmission Date: 20130627
  Serious: Yes (Disabling, Other)
  Sender: FDA-Public Use
  Company Number: NL-GENZYME-CLOF-1002286

PATIENT
  Age: 39 Year
  Sex: Male
  Weight: 68 kg

DRUGS (4)
  1. EVOLTRA [Suspect]
     Indication: ACUTE MYELOID LEUKAEMIA
     Dosage: 18 mg, UNK
     Route: 042
     Dates: start: 20120625
  2. CYTARABINE [Suspect]
     Indication: ACUTE MYELOID LEUKAEMIA
     Dosage: 3600 mg, UNK
     Route: 042
     Dates: start: 20120625
  3. AMSACRINE [Suspect]
     Indication: ACUTE MYELOID LEUKAEMIA
     Dosage: 220 mg, UNK
     Route: 042
     Dates: start: 20120628
  4. VALACYCLOVIR [Suspect]
     Indication: PROPHYLAXIS
     Dosage: 500 mg, UNK
     Route: 048
     Dates: start: 20120530

REACTIONS (2)
  - Endophthalmitis [Recovered/Resolved]
  - Encephalopathy [Recovered/Resolved]
